FAERS Safety Report 13744626 (Version 6)
Quarter: 2017Q4

REPORT INFORMATION
  Report Type: Spontaneous
  Country: US (occurrence: US)
  Receive Date: 20170712
  Receipt Date: 20171106
  Transmission Date: 20180320
  Serious: Yes (Disabling)
  Sender: FDA-Public Use
  Company Number: US-CLOVIS ONCOLOGY-CLO-2017-000681

PATIENT
  Age: 64 Year
  Sex: Female

DRUGS (1)
  1. RUBRACA [Suspect]
     Active Substance: RUCAPARIB CAMSYLATE
     Indication: OVARIAN CANCER
     Dosage: 600 MG, BID
     Route: 048
     Dates: start: 20170626, end: 20171025

REACTIONS (17)
  - Depressed mood [Unknown]
  - Blood glucose increased [Unknown]
  - Malignant neoplasm progression [Unknown]
  - Abdominal pain [Recovering/Resolving]
  - Osteoarthritis [Unknown]
  - Headache [Unknown]
  - Fatigue [Not Recovered/Not Resolved]
  - Underdose [Unknown]
  - Drug dose omission [Unknown]
  - Anxiety [Unknown]
  - Peripheral swelling [Unknown]
  - Constipation [Not Recovered/Not Resolved]
  - Loss of personal independence in daily activities [Unknown]
  - Gait disturbance [Unknown]
  - Somnolence [Unknown]
  - Carbohydrate antigen 125 increased [Unknown]
  - Decreased appetite [Unknown]

NARRATIVE: CASE EVENT DATE: 2017
